FAERS Safety Report 26112026 (Version 1)
Quarter: 2025Q4

REPORT INFORMATION
  Report Type: Spontaneous
  Country: EU (occurrence: EU)
  Receive Date: 20251202
  Receipt Date: 20251202
  Transmission Date: 20260118
  Serious: Yes (Other)
  Sender: APELLIS PHARMACEUTICALS
  Company Number: EU-BIOVITRUM-2025-DE-016697

PATIENT

DRUGS (1)
  1. PEGCETACOPLAN [Suspect]
     Active Substance: PEGCETACOPLAN
     Indication: C3 glomerulopathy
     Route: 058

REACTIONS (2)
  - Off label use [Unknown]
  - Pneumonia [Unknown]
